FAERS Safety Report 9609337 (Version 1)
Quarter: 2013Q4

REPORT INFORMATION
  Report Type: Report from Study
  Country: AR (occurrence: AR)
  Receive Date: 20131009
  Receipt Date: 20131009
  Transmission Date: 20140711
  Serious: Yes (Hospitalization, Other)
  Sender: FDA-Public Use
  Company Number: PHHY2013AR113107

PATIENT
  Sex: Female

DRUGS (2)
  1. DIOVAN [Suspect]
     Indication: HYPERTENSION
     Dosage: 1 DF (160MG), A DAY
     Route: 048
  2. LIORESAL [Suspect]
     Dosage: 10 MG, UNK

REACTIONS (6)
  - Breast disorder [Recovered/Resolved]
  - Blood pressure systolic decreased [Recovered/Resolved]
  - Feeling abnormal [Recovered/Resolved]
  - Fall [Recovering/Resolving]
  - Joint injury [Recovering/Resolving]
  - Drug intolerance [Unknown]
